FAERS Safety Report 26133348 (Version 1)
Quarter: 2025Q4

REPORT INFORMATION
  Report Type: Spontaneous
  Country: CN (occurrence: CN)
  Receive Date: 20251209
  Receipt Date: 20251209
  Transmission Date: 20260117
  Serious: Yes (Other)
  Sender: GE HEALTHCARE
  Company Number: None

PATIENT
  Age: 70 Year
  Sex: Male
  Weight: 51 kg

DRUGS (1)
  1. OMNIPAQUE [Suspect]
     Active Substance: IOHEXOL
     Indication: Imaging procedure
     Dosage: 60 ML, TOTAL
     Route: 042
     Dates: start: 20251117

REACTIONS (5)
  - Delirium [Recovered/Resolved]
  - Dysphoria [Recovered/Resolved]
  - Disorganised speech [Recovered/Resolved]
  - Contrast encephalopathy [Recovered/Resolved]
  - Erythema [Recovered/Resolved]

NARRATIVE: CASE EVENT DATE: 20251118
